FAERS Safety Report 7985509 (Version 7)
Quarter: 2014Q4

REPORT INFORMATION
  Report Type: Report from Study
  Country: JP (occurrence: JP)
  Receive Date: 20110610
  Receipt Date: 20141007
  Transmission Date: 20150529
  Serious: Yes (Death)
  Sender: FDA-Public Use
  Company Number: JP-PFIZER INC-2011125405

PATIENT
  Age: 30 Year
  Sex: Male
  Weight: 75 kg

DRUGS (6)
  1. CHLOR-TRIMETON [Concomitant]
     Active Substance: CHLORPHENIRAMINE MALEATE
     Indication: PROPHYLAXIS
     Dosage: 10 MG, WEEKLY (ONLY ON THE DAY OF TEMSIROLIMUS ADMINISTRATION)
     Route: 042
     Dates: start: 20110126, end: 20110406
  2. DECADRON [Concomitant]
     Active Substance: DEXAMETHASONE
     Indication: RENAL CELL CARCINOMA
     Dosage: 0.5 MG, 1X/DAY
     Route: 048
     Dates: start: 20110316
  3. TEMSIROLIMUS [Suspect]
     Active Substance: TEMSIROLIMUS
     Dosage: 25 MG, WEEKLY
     Route: 041
     Dates: start: 20110425, end: 20110425
  4. CHLOR-TRIMETON [Concomitant]
     Active Substance: CHLORPHENIRAMINE MALEATE
     Dosage: 10 MG, SINGLE
     Route: 042
     Dates: start: 20110425, end: 20110425
  5. TEMSIROLIMUS [Suspect]
     Active Substance: TEMSIROLIMUS
     Indication: METASTATIC RENAL CELL CARCINOMA
     Dosage: 25 MG, WEEKLY
     Route: 041
     Dates: start: 20110126, end: 20110406
  6. MORPHINE [Concomitant]
     Active Substance: MORPHINE
     Dosage: 40 MG, UNK
     Route: 042
     Dates: end: 20110513

REACTIONS (2)
  - Disseminated intravascular coagulation [Fatal]
  - Pneumocystis jirovecii pneumonia [Fatal]

NARRATIVE: CASE EVENT DATE: 20110425
